FAERS Safety Report 10930752 (Version 1)
Quarter: 2015Q1

REPORT INFORMATION
  Report Type: Spontaneous
  Country: None (occurrence: None)
  Receive Date: 20150318
  Receipt Date: 20150318
  Transmission Date: 20150721
  Serious: No
  Sender: FDA-Public Use
  Company Number: None

PATIENT
  Age: 21 Year
  Sex: Female

DRUGS (8)
  1. LEVAQUIN [Suspect]
     Active Substance: LEVOFLOXACIN
     Dosage: 1 TAB
     Route: 048
  2. ADDERALL XR [Concomitant]
     Active Substance: AMPHETAMINE ASPARTATE\AMPHETAMINE SULFATE\DEXTROAMPHETAMINE SACCHARATE\DEXTROAMPHETAMINE SULFATE
  3. MIRENA [Concomitant]
     Active Substance: LEVONORGESTREL
  4. PREDNISONE. [Concomitant]
     Active Substance: PREDNISONE
  5. TESSALON [Concomitant]
     Active Substance: BENZONATATE
  6. HYDROCODONE [Concomitant]
     Active Substance: HYDROCODONE
  7. PROVENTIL HFA [Concomitant]
     Active Substance: ALBUTEROL SULFATE
  8. FLONASE [Concomitant]
     Active Substance: FLUTICASONE PROPIONATE

REACTIONS (3)
  - Myalgia [None]
  - Tenderness [None]
  - Arthralgia [None]

NARRATIVE: CASE EVENT DATE: 20140924
